FAERS Safety Report 6677996-0 (Version None)
Quarter: 2010Q2

REPORT INFORMATION
  Report Type: 
  Country: None (occurrence: None)
  Receive Date: 20100412
  Receipt Date: 20100407
  Transmission Date: 20101027
  Serious: Yes (Death, Hospitalization)
  Sender: FDA-Public Use
  Company Number: BR-ABBOTT-09P-020-0613263-00

PATIENT
  Sex: Male
  Weight: 62 kg

DRUGS (4)
  1. HUMIRA [Suspect]
     Indication: RHEUMATOID ARTHRITIS
     Route: 058
     Dates: start: 20090401, end: 20091101
  2. MONOPRIL [Concomitant]
     Indication: HYPERTENSION
     Route: 048
  3. METHOTREXATE [Concomitant]
     Indication: RHEUMATOID ARTHRITIS
     Route: 048
     Dates: start: 20070101
  4. FRONTAL [Concomitant]
     Indication: ANTIDEPRESSANT THERAPY
     Route: 048
     Dates: start: 20080101

REACTIONS (6)
  - ARTHRITIS INFECTIVE [None]
  - ASTHENIA [None]
  - DEHYDRATION [None]
  - HYPERTENSION [None]
  - IMMUNODEFICIENCY [None]
  - PNEUMONIA [None]
